FAERS Safety Report 7326141-7 (Version None)
Quarter: 2011Q1

REPORT INFORMATION
  Report Type: 
  Country: None (occurrence: None)
  Receive Date: 20110217
  Receipt Date: 20110204
  Transmission Date: 20110831
  Serious: Yes (Other)
  Sender: FDA-Public Use
  Company Number: 2011SP005236

PATIENT
  Sex: Male

DRUGS (1)
  1. NITROGLYCERIN [Suspect]

REACTIONS (2)
  - HYPOTENSION [None]
  - DEHYDRATION [None]
